FAERS Safety Report 7732205-6 (Version None)
Quarter: 2011Q3

REPORT INFORMATION
  Report Type: 
  Country: None (occurrence: None)
  Receive Date: 20110906
  Receipt Date: 20110818
  Transmission Date: 20111222
  Serious: No
  Sender: FDA-Public Use
  Company Number: US-AMGEN-USASP2011042273

PATIENT
  Age: 70 Year
  Sex: Female

DRUGS (4)
  1. PROLIA [Suspect]
     Indication: OSTEOPOROSIS POSTMENOPAUSAL
     Dosage: 60 MG, Q6MO
     Dates: start: 20110712
  2. VITAMIN D [Concomitant]
     Dosage: UNK
  3. CALCIUM CARBONATE [Concomitant]
     Dates: end: 20110101
  4. FISH OIL [Concomitant]

REACTIONS (1)
  - BONE PAIN [None]
